FAERS Safety Report 7490236-8 (Version None)
Quarter: 2011Q2

REPORT INFORMATION
  Report Type: 
  Country: None (occurrence: None)
  Receive Date: 20110519
  Receipt Date: 20110513
  Transmission Date: 20111010
  Serious: No
  Sender: FDA-Public Use
  Company Number: US-PFIZER INC-2011103550

PATIENT
  Age: 67 Year
  Sex: Female

DRUGS (4)
  1. FUROSEMIDE [Interacting]
     Indication: DIURETIC THERAPY
     Dosage: 40 MG, 1X/DAY
     Dates: start: 19980101
  2. ADVIL LIQUI-GELS [Suspect]
     Indication: ARTHRALGIA
     Dosage: 2 DF, 2X/DAY
     Dates: start: 20110401, end: 20110512
  3. DILTIAZEM HCL [Interacting]
     Indication: HYPERTENSION
     Dosage: 240 MG, 1X/DAY
     Dates: start: 19960101
  4. VALSARTAN [Interacting]
     Indication: HYPERTENSION
     Dosage: 320 MG, 1X/DAY
     Route: 048
     Dates: start: 19960101

REACTIONS (6)
  - ABDOMINAL DISCOMFORT [None]
  - DRUG INEFFECTIVE [None]
  - BLOOD PRESSURE ABNORMAL [None]
  - ASTHMA [None]
  - MALAISE [None]
  - DRUG INTERACTION [None]
